FAERS Safety Report 25565075 (Version 1)
Quarter: 2025Q3

REPORT INFORMATION
  Report Type: Spontaneous
  Country: EU (occurrence: EU)
  Receive Date: 20250716
  Receipt Date: 20250716
  Transmission Date: 20251020
  Serious: Yes (Hospitalization)
  Sender: RANBAXY
  Company Number: EU-AFSSAPS-GR2025000474

PATIENT
  Age: 76 Year
  Sex: Male
  Weight: 57 kg

DRUGS (1)
  1. AZITHROMYCIN [Suspect]
     Active Substance: AZITHROMYCIN
     Indication: Colitis
     Dosage: 500 MILLIGRAM, DAILY
     Route: 048
     Dates: start: 20250222, end: 20250225

REACTIONS (1)
  - Hepatitis cholestatic [Recovered/Resolved with Sequelae]

NARRATIVE: CASE EVENT DATE: 20250224
